FAERS Safety Report 8003083-5 (Version None)
Quarter: 2011Q4

REPORT INFORMATION
  Report Type: 
  Country: None (occurrence: None)
  Receive Date: 20111222
  Receipt Date: 20111213
  Transmission Date: 20120403
  Serious: Yes (Hospitalization, Other)
  Sender: FDA-Public Use
  Company Number: FR-PFIZER INC-K201101014

PATIENT
  Age: 79 Year
  Sex: Female

DRUGS (6)
  1. INVESTIGATIONAL DRUG [Concomitant]
     Indication: TYPE 2 DIABETES MELLITUS
     Dosage: UNK
     Route: 048
     Dates: start: 20101110
  2. AMARYL [Concomitant]
     Dosage: 1 MG, UNK
     Route: 048
     Dates: start: 20101116
  3. ALTACE [Suspect]
     Route: 048
  4. HMG COA REDUCTASE INHIBITORS [Concomitant]
  5. CALCIUM CHANNEL BLOCKERS [Concomitant]
  6. POTASSIUM [Suspect]
     Route: 065

REACTIONS (6)
  - CARDIOMEGALY [None]
  - HYPERKALAEMIA [None]
  - CHEST PAIN [None]
  - DIZZINESS POSTURAL [None]
  - BRADYARRHYTHMIA [None]
  - PULMONARY CONGESTION [None]
